FAERS Safety Report 23733042 (Version 4)
Quarter: 2024Q2

REPORT INFORMATION
  Report Type: Spontaneous
  Country: US (occurrence: US)
  Receive Date: 20240411
  Receipt Date: 20240619
  Transmission Date: 20240716
  Serious: No
  Sender: FDA-Public Use
  Company Number: US-PFIZER INC-202400080435

PATIENT
  Age: 20 Year
  Sex: Female
  Weight: 66.6 kg

DRUGS (1)
  1. OXBRYTA [Suspect]
     Active Substance: VOXELOTOR
     Dosage: 1500 MG, DAILY
     Route: 048

REACTIONS (1)
  - Treatment noncompliance [Not Recovered/Not Resolved]
